FAERS Safety Report 17314981 (Version 1)
Quarter: 2020Q1

REPORT INFORMATION
  Report Type: Spontaneous
  Country: CA (occurrence: CA)
  Receive Date: 20200124
  Receipt Date: 20200124
  Transmission Date: 20200409
  Serious: Yes (Other)
  Sender: FDA-Public Use
  Company Number: CA-TEVA-2020-CA-1172443

PATIENT

DRUGS (8)
  1. INFLIXIMAB [Suspect]
     Active Substance: INFLIXIMAB
     Route: 065
  2. VERSED [Concomitant]
     Active Substance: MIDAZOLAM HYDROCHLORIDE
     Indication: SEDATION
     Dates: start: 20191219, end: 20191219
  3. BISOPROLOL [Suspect]
     Active Substance: BISOPROLOL
     Dosage: 2.5 MILLIGRAM DAILY;
     Route: 065
  4. LOSARTAN. [Suspect]
     Active Substance: LOSARTAN
     Dosage: 50 MILLIGRAM DAILY;
     Route: 065
  5. LATANOPROST. [Concomitant]
     Active Substance: LATANOPROST
  6. FENTANYL. [Concomitant]
     Active Substance: FENTANYL
     Indication: SEDATION
     Dates: start: 20191219, end: 20191219
  7. HYDROCHLOROTHIAZIDE. [Suspect]
     Active Substance: HYDROCHLOROTHIAZIDE
     Dosage: 12.5 MILLIGRAM DAILY;
     Route: 065
  8. LATANOPROST. [Suspect]
     Active Substance: LATANOPROST

REACTIONS (6)
  - Obesity [Unknown]
  - Diarrhoea [Unknown]
  - Large intestine polyp [Unknown]
  - Intestinal anastomosis [Unknown]
  - Diverticulitis [Unknown]
  - Haemorrhoids [Unknown]
